FAERS Safety Report 17843660 (Version 3)
Quarter: 2022Q3

REPORT INFORMATION
  Report Type: Spontaneous
  Country: CN (occurrence: None)
  Receive Date: 20200531
  Receipt Date: 20220825
  Transmission Date: 20221027
  Serious: Yes (Other)
  Sender: FDA-Public Use
  Company Number: CN-ROCHE-2381130

PATIENT
  Age: 50 Year
  Sex: Female

DRUGS (18)
  1. XELODA [Suspect]
     Active Substance: CAPECITABINE
     Indication: Rectal adenocarcinoma
     Route: 048
     Dates: start: 20160716
  2. XELODA [Suspect]
     Active Substance: CAPECITABINE
     Dosage: MONOTHERAPY CHEMOTHERAPY
     Route: 048
     Dates: start: 2016
  3. XELODA [Suspect]
     Active Substance: CAPECITABINE
     Route: 048
     Dates: start: 20160922, end: 20161222
  4. XELODA [Suspect]
     Active Substance: CAPECITABINE
     Route: 048
     Dates: start: 20170718
  5. XELODA [Suspect]
     Active Substance: CAPECITABINE
     Dosage: MONOTHERAPY CHEMOTHERAPY
     Route: 048
     Dates: start: 2018
  6. XELODA [Suspect]
     Active Substance: CAPECITABINE
     Route: 065
     Dates: start: 20181010, end: 20181117
  7. XELODA [Suspect]
     Active Substance: CAPECITABINE
     Route: 065
     Dates: start: 20191206, end: 20191227
  8. BEVACIZUMAB [Suspect]
     Active Substance: BEVACIZUMAB
     Indication: Rectal adenocarcinoma
     Route: 065
     Dates: start: 20190105, end: 20190415
  9. BEVACIZUMAB [Suspect]
     Active Substance: BEVACIZUMAB
     Route: 065
     Dates: start: 20191206, end: 20191227
  10. BEVACIZUMAB [Suspect]
     Active Substance: BEVACIZUMAB
     Route: 065
     Dates: start: 20210412, end: 20210720
  11. OXALIPLATIN [Suspect]
     Active Substance: OXALIPLATIN
     Indication: Rectal adenocarcinoma
     Route: 065
     Dates: start: 20160716
  12. OXALIPLATIN [Suspect]
     Active Substance: OXALIPLATIN
     Route: 065
     Dates: start: 20160922, end: 20161222
  13. OXALIPLATIN [Suspect]
     Active Substance: OXALIPLATIN
     Route: 065
     Dates: start: 20170718
  14. OXALIPLATIN [Suspect]
     Active Substance: OXALIPLATIN
     Route: 065
     Dates: start: 20190105, end: 20190415
  15. OXALIPLATIN [Suspect]
     Active Substance: OXALIPLATIN
     Route: 065
     Dates: start: 20210412
  16. LEUCOVORIN CALCIUM [Suspect]
     Active Substance: LEUCOVORIN CALCIUM
     Indication: Rectal adenocarcinoma
     Route: 065
     Dates: start: 20190105, end: 20190415
  17. FLUOROURACIL [Suspect]
     Active Substance: FLUOROURACIL
     Indication: Rectal adenocarcinoma
     Route: 065
     Dates: start: 20190105, end: 20190415
  18. RALTITREXED [Suspect]
     Active Substance: RALTITREXED
     Indication: Rectal adenocarcinoma
     Dosage: SUBSEQUENT DOSE: 20-JUL-2021
     Route: 065
     Dates: start: 20210412

REACTIONS (12)
  - Myelosuppression [Recovering/Resolving]
  - Anastomotic stenosis [Unknown]
  - Neurotoxicity [Unknown]
  - Gastroenteritis radiation [Recovering/Resolving]
  - White blood cell count decreased [Unknown]
  - Rash [Unknown]
  - Gastrointestinal disorder [Unknown]
  - Granulocyte count decreased [Unknown]
  - Colitis [Unknown]
  - Stoma site extravasation [Unknown]
  - Renal disorder [Unknown]
  - Abdominal wall oedema [Unknown]

NARRATIVE: CASE EVENT DATE: 20160101
